FAERS Safety Report 16933959 (Version 1)
Quarter: 2019Q4

REPORT INFORMATION
  Report Type: Spontaneous
  Country: US (occurrence: US)
  Receive Date: 20191018
  Receipt Date: 20191018
  Transmission Date: 20200122
  Serious: No
  Sender: FDA-Public Use
  Company Number: US-GLAXOSMITHKLINE-US2019AMR187590

PATIENT
  Sex: Female

DRUGS (2)
  1. PREVACID [Suspect]
     Active Substance: LANSOPRAZOLE
     Indication: CYSTITIS INTERSTITIAL
     Dosage: UNK
  2. ZANTAC [Suspect]
     Active Substance: RANITIDINE HYDROCHLORIDE
     Indication: CYSTITIS INTERSTITIAL
     Dosage: 150 MG, UNK

REACTIONS (3)
  - Condition aggravated [Unknown]
  - Cystitis interstitial [Unknown]
  - Product use in unapproved indication [Unknown]
